FAERS Safety Report 4575077-3 (Version None)
Quarter: 2005Q1

REPORT INFORMATION
  Report Type: 
  Country: None (occurrence: None)
  Receive Date: 20050208
  Receipt Date: 20050114
  Transmission Date: 20050727
  Serious: Yes (Other)
  Sender: FDA-Public Use
  Company Number: FR-GLAXOSMITHKLINE-B0364837A

PATIENT
  Age: 35 Year
  Sex: Male

DRUGS (4)
  1. LAMICTAL [Suspect]
     Indication: EPILEPSY
     Route: 048
     Dates: start: 20041216, end: 20041228
  2. DEPAKENE [Concomitant]
     Indication: EPILEPSY
     Dosage: 1000MG TWICE PER DAY
     Route: 048
  3. CLONAZEPAM [Concomitant]
     Indication: EPILEPSY
     Dosage: .5MG TWICE PER DAY
     Route: 048
  4. PRAVASTATIN [Concomitant]
     Indication: HYPERCHOLESTEROLAEMIA
     Route: 048

REACTIONS (4)
  - AGITATION [None]
  - PRURITUS [None]
  - RASH MACULO-PAPULAR [None]
  - TOXIC SKIN ERUPTION [None]
